FAERS Safety Report 25173533 (Version 2)
Quarter: 2025Q2

REPORT INFORMATION
  Report Type: Spontaneous
  Country: US (occurrence: US)
  Receive Date: 20250408
  Receipt Date: 20250507
  Transmission Date: 20250716
  Serious: No
  Sender: PRASCO
  Company Number: US-Prasco Laboratories-PRAS20250133

PATIENT
  Age: 90 Year
  Sex: Female

DRUGS (3)
  1. ESTRADIOL [Suspect]
     Active Substance: ESTRADIOL
     Indication: Atrophic vulvovaginitis
     Route: 067
  2. WET WIPES [Suspect]
     Active Substance: BENZETHONIUM CHLORIDE\DIDECYLDIMONIUM CHLORIDE
     Indication: Product used for unknown indication
     Route: 065
  3. PREMARIN [Concomitant]
     Active Substance: ESTROGENS, CONJUGATED
     Indication: Product used for unknown indication
     Route: 065

REACTIONS (2)
  - Vulvovaginal burning sensation [Recovered/Resolved]
  - Off label use [None]
